FAERS Safety Report 15552928 (Version 2)
Quarter: 2018Q4

REPORT INFORMATION
  Report Type: Other
  Country: US (occurrence: US)
  Receive Date: 20181025
  Receipt Date: 20181112
  Transmission Date: 20190205
  Serious: No
  Sender: FDA-Public Use
  Company Number: US-ALEMBIC PHARMACUETICALS LIMITED-2018SCAL000789

PATIENT
  Sex: Female

DRUGS (1)
  1. LAMOTRIGINE. [Suspect]
     Active Substance: LAMOTRIGINE
     Indication: BIPOLAR DISORDER
     Dosage: 150 MILLIGRAM, OD

REACTIONS (7)
  - Abnormal behaviour [Recovered/Resolved]
  - Malaise [Recovered/Resolved]
  - Crying [Recovered/Resolved]
  - Anger [Recovered/Resolved]
  - Product substitution issue [Unknown]
  - Inappropriate affect [Recovered/Resolved]
  - Tremor [Recovered/Resolved]

NARRATIVE: CASE EVENT DATE: 20180626
